FAERS Safety Report 7463226-9 (Version None)
Quarter: 2011Q2

REPORT INFORMATION
  Report Type: 
  Country: None (occurrence: None)
  Receive Date: 20110506
  Receipt Date: 20110429
  Transmission Date: 20111010
  Serious: Yes (Hospitalization)
  Sender: FDA-Public Use
  Company Number: FR-ROCHE-767171

PATIENT
  Sex: Female
  Weight: 74 kg

DRUGS (12)
  1. ACTEMRA [Suspect]
     Dosage: FOURTH INFUSION
     Route: 042
     Dates: start: 20110304, end: 20110304
  2. ACTISKENAN [Concomitant]
     Indication: PAIN
  3. SALAZOPYRINE [Concomitant]
     Indication: RHEUMATOID ARTHRITIS
  4. PERINDOPRIL [Concomitant]
     Indication: HYPERTENSION
     Dosage: DRUG: DETENSIEL 0.5
  5. ACTEMRA [Suspect]
     Indication: RHEUMATOID ARTHRITIS
     Dosage: FORM: INFUSION. FREQUENCY: CYCLE
     Route: 042
     Dates: start: 20101129
  6. BISOPROLOL FUMARATE [Concomitant]
     Indication: HYPERTENSION
  7. ACETAMINOPHEN [Concomitant]
     Indication: PAIN
  8. ACTEMRA [Suspect]
     Dosage: THIRD INFUSION
     Route: 042
     Dates: start: 20110128
  9. EFFEXOR [Concomitant]
     Indication: DEPRESSION
  10. EUPANTOL [Concomitant]
     Indication: PROPHYLAXIS
  11. LEXOMIL [Concomitant]
     Indication: ANXIETY
     Dosage: AT BEDTIME
  12. SKENAN LP [Concomitant]
     Indication: PAIN

REACTIONS (2)
  - FATIGUE [None]
  - OEDEMA PERIPHERAL [None]
